FAERS Safety Report 23614542 (Version 1)
Quarter: 2024Q1

REPORT INFORMATION
  Report Type: Spontaneous
  Country: TW (occurrence: TW)
  Receive Date: 20240311
  Receipt Date: 20240311
  Transmission Date: 20240409
  Serious: Yes (Other)
  Sender: FDA-Public Use
  Company Number: TW-JAZZ PHARMACEUTICALS-2024-TW-004113

PATIENT
  Age: 7 Year
  Sex: Male

DRUGS (1)
  1. CANNABIDIOL [Suspect]
     Active Substance: CANNABIDIOL
     Indication: Severe myoclonic epilepsy of infancy

REACTIONS (2)
  - Generalised tonic-clonic seizure [Unknown]
  - COVID-19 [Unknown]
